FAERS Safety Report 4458129-8 (Version None)
Quarter: 2004Q3

REPORT INFORMATION
  Report Type: 
  Country: None (occurrence: None)
  Receive Date: 20040924
  Receipt Date: 20040702
  Transmission Date: 20050211
  Serious: Yes (Disabling)
  Sender: FDA-Public Use
  Company Number: JP-GLAXOSMITHKLINE-B0338064A

PATIENT
  Age: 64 Year
  Sex: Female

DRUGS (2)
  1. PAXIL [Suspect]
     Indication: DEPRESSION
     Route: 048
     Dates: start: 20040604, end: 20040628
  2. RESTAS [Concomitant]
     Indication: ANXIETY DISORDER
     Dosage: 2MG PER DAY
     Route: 048
     Dates: start: 20040604

REACTIONS (5)
  - ABASIA [None]
  - ABDOMINAL DISTENSION [None]
  - CONSTIPATION [None]
  - PALPITATIONS [None]
  - URINARY RETENTION [None]
